FAERS Safety Report 4973755-5 (Version None)
Quarter: 2006Q2

REPORT INFORMATION
  Report Type: 
  Country: None (occurrence: None)
  Receive Date: 20060414
  Receipt Date: 20030730
  Transmission Date: 20061013
  Serious: Yes (Hospitalization, Disabling)
  Sender: FDA-Public Use
  Company Number: US-MERCK-0307USA03459

PATIENT
  Age: 46 Year
  Sex: Male
  Weight: 91 kg

DRUGS (8)
  1. ZOCOR [Concomitant]
     Indication: HYPERCHOLESTEROLAEMIA
     Route: 048
  2. CARDURA [Concomitant]
     Indication: HYPERTENSION
     Route: 048
     Dates: start: 19940101, end: 20010101
  3. TYLENOL (CAPLET) [Concomitant]
     Indication: SLEEP DISORDER
     Route: 065
  4. TAGAMET [Concomitant]
     Indication: PROPHYLAXIS
     Route: 065
  5. TAGAMET [Concomitant]
     Indication: GASTRIC DISORDER
     Route: 065
  6. PLAVIX [Concomitant]
     Route: 065
  7. VIOXX [Suspect]
     Indication: ARTHRALGIA
     Route: 048
     Dates: start: 20010620, end: 20010728
  8. VIOXX [Suspect]
     Indication: OSTEOARTHRITIS
     Route: 048
     Dates: start: 20010620, end: 20010728

REACTIONS (31)
  - ACUTE MYOCARDIAL INFARCTION [None]
  - ANGINA PECTORIS [None]
  - ANGINA UNSTABLE [None]
  - AORTIC ANEURYSM [None]
  - BARRETT'S OESOPHAGUS [None]
  - BLOOD PRESSURE INCREASED [None]
  - CARDIAC FAILURE CONGESTIVE [None]
  - CHEST PAIN [None]
  - CHRONIC FATIGUE SYNDROME [None]
  - CONTUSION [None]
  - CORONARY ARTERY DISEASE [None]
  - CYST [None]
  - DEPRESSION [None]
  - DISABILITY [None]
  - DUODENITIS [None]
  - DYSPEPSIA [None]
  - FATIGUE [None]
  - GASTRITIS EROSIVE [None]
  - GASTROOESOPHAGEAL REFLUX DISEASE [None]
  - HEADACHE [None]
  - HYPERHIDROSIS [None]
  - HYPOGONADISM [None]
  - HYPOTENSION [None]
  - ISCHAEMIC CARDIOMYOPATHY [None]
  - MOOD ALTERED [None]
  - PARAESTHESIA [None]
  - PEPTIC ULCER [None]
  - REFLUX OESOPHAGITIS [None]
  - SLEEP APNOEA SYNDROME [None]
  - TENDONITIS [None]
  - VENTRICULAR EXTRASYSTOLES [None]
